FAERS Safety Report 22635352 (Version 1)
Quarter: 2023Q2

REPORT INFORMATION
  Report Type: Spontaneous
  Country: US (occurrence: None)
  Receive Date: 20230620
  Receipt Date: 20230620
  Transmission Date: 20230722
  Serious: Yes (Hospitalization)
  Sender: FDA-Public Use
  Company Number: None

PATIENT
  Sex: Female

DRUGS (1)
  1. MYCOPHENOLATE MOFETIL [Suspect]
     Active Substance: MYCOPHENOLATE MOFETIL
     Indication: Neutropenia
     Dosage: FREQUENCY : TWICE A DAY;?
     Route: 048
     Dates: start: 202302

REACTIONS (2)
  - Pyrexia [None]
  - Culture positive [None]
